FAERS Safety Report 7997273-5 (Version None)
Quarter: 2011Q4

REPORT INFORMATION
  Report Type: 
  Country: None (occurrence: None)
  Receive Date: 20111221
  Receipt Date: 20111213
  Transmission Date: 20120403
  Serious: Yes (Hospitalization, Other)
  Sender: FDA-Public Use
  Company Number: US-AMGEN-USACT2011039130

PATIENT
  Age: 86 Year
  Sex: Female
  Weight: 63.492 kg

DRUGS (16)
  1. LEVOXYL [Concomitant]
  2. LOSARTAN POTASSIUM [Concomitant]
  3. SYNTHROID [Concomitant]
     Dosage: 88 MUG, UNK
  4. URECHOLINE [Concomitant]
  5. BLINDED DARBEPOETIN ALFA [Suspect]
     Dates: start: 20080226
  6. LANOXIN [Concomitant]
     Dosage: 0.125 MG, QD
  7. METFORMIN HCL [Concomitant]
     Dosage: 250 MG, UNK
  8. IRON [Concomitant]
     Dosage: 27 MG, UNK
  9. LASIX [Concomitant]
     Dosage: 40 MG, UNK
  10. PLACEBO [Suspect]
     Indication: CARDIAC FAILURE
     Dates: start: 20080226
  11. COUMADIN [Concomitant]
     Dosage: 2.5 MG, UNK
  12. COREG [Concomitant]
     Dosage: 6.25 MG, UNK
  13. CHOLESTYRAMINE [Concomitant]
  14. FEOSOL [Concomitant]
  15. BLINDED DARBEPOETIN ALFA [Suspect]
     Indication: CARDIAC FAILURE
     Dates: start: 20080226
  16. ALDACTONE [Concomitant]
     Dosage: 25 MG, UNK

REACTIONS (3)
  - NON-CARDIAC CHEST PAIN [None]
  - HEPATIC NEOPLASM MALIGNANT [None]
  - DYSPNOEA [None]
